FAERS Safety Report 4514937-6 (Version None)
Quarter: 2004Q4

REPORT INFORMATION
  Report Type: 
  Country: None (occurrence: None)
  Receive Date: 20041129
  Receipt Date: 20041129
  Transmission Date: 20050328
  Serious: Yes (Life-Threatening, Other)
  Sender: FDA-Public Use
  Company Number: None

PATIENT
  Age: 55 Year
  Sex: Male
  Weight: 79.3795 kg

DRUGS (1)
  1. ZOLOFT [Suspect]

REACTIONS (7)
  - ABNORMAL BEHAVIOUR [None]
  - DRUG ABUSER [None]
  - HOMICIDAL IDEATION [None]
  - HYPERSOMNIA [None]
  - INSOMNIA [None]
  - PARANOIA [None]
  - SUICIDAL IDEATION [None]
